FAERS Safety Report 8341252-5 (Version None)
Quarter: 2012Q2

REPORT INFORMATION
  Report Type: 
  Country: None (occurrence: None)
  Receive Date: 20120507
  Receipt Date: 20120426
  Transmission Date: 20120825
  Serious: Yes (Other)
  Sender: FDA-Public Use
  Company Number: US-JNJFOC-20120414147

PATIENT
  Sex: Female
  Weight: 117.94 kg

DRUGS (3)
  1. REMICADE [Suspect]
     Indication: CROHN'S DISEASE
     Route: 042
     Dates: start: 20120301
  2. TYLENOL (CAPLET) [Concomitant]
     Indication: PREMEDICATION
     Route: 065
  3. BENADRYL [Concomitant]
     Indication: PREMEDICATION
     Route: 065

REACTIONS (6)
  - HEPATIC PAIN [None]
  - FATIGUE [None]
  - INFUSION RELATED REACTION [None]
  - HEADACHE [None]
  - BACK PAIN [None]
  - RENAL PAIN [None]
